FAERS Safety Report 17324458 (Version 2)
Quarter: 2020Q1

REPORT INFORMATION
  Report Type: Spontaneous
  Country: PT (occurrence: PT)
  Receive Date: 20200127
  Receipt Date: 20200130
  Transmission Date: 20200409
  Serious: Yes (Hospitalization, Other)
  Sender: FDA-Public Use
  Company Number: PT-MYLANLABS-2020M1008741

PATIENT
  Age: 67 Year
  Sex: Female

DRUGS (2)
  1. DEFLAZACORT [Concomitant]
     Active Substance: DEFLAZACORT
     Indication: RHEUMATOID ARTHRITIS
     Dosage: 30 MILLIGRAM, QD (30 MG, DAILY)
  2. METHOTREXATE. [Suspect]
     Active Substance: METHOTREXATE
     Indication: RHEUMATOID ARTHRITIS
     Dosage: 7.5 MILLIGRAM, QD (7.5 MG, DAILY) INSTEAD OF WEEKLY

REACTIONS (10)
  - Pancytopenia [Recovered/Resolved]
  - Respiratory failure [Recovered/Resolved]
  - Stomatitis [Recovered/Resolved]
  - Toxic encephalopathy [Recovered/Resolved]
  - Accidental overdose [Recovered/Resolved]
  - Mouth ulceration [Not Recovered/Not Resolved]
  - Hepatocellular injury [Recovered/Resolved]
  - Hypersensitivity pneumonitis [Unknown]
  - Encephalopathy [Unknown]
  - Accidental poisoning [Unknown]
